FAERS Safety Report 24117224 (Version 1)
Quarter: 2024Q3

REPORT INFORMATION
  Report Type: Spontaneous
  Country: FR (occurrence: FR)
  Receive Date: 20240722
  Receipt Date: 20240722
  Transmission Date: 20241016
  Serious: Yes (Hospitalization, Other)
  Sender: AUROBINDO
  Company Number: FR-009507513-2406FRA009314

PATIENT
  Age: 51 Year
  Sex: Female
  Weight: 83 kg

DRUGS (8)
  1. CARBOPLATIN [Suspect]
     Active Substance: CARBOPLATIN
     Indication: Triple negative breast cancer
     Dosage: UNK
     Route: 065
     Dates: start: 20240315, end: 20240624
  2. CARBOPLATIN [Suspect]
     Active Substance: CARBOPLATIN
     Dosage: UNK
     Route: 065
     Dates: start: 202406
  3. KEYTRUDA [Suspect]
     Active Substance: PEMBROLIZUMAB
     Indication: Triple negative breast cancer
     Dosage: 200 MILLIGRAM, (EVERY 3 WEEK)
     Route: 065
     Dates: start: 20240517, end: 20240517
  4. KEYTRUDA [Suspect]
     Active Substance: PEMBROLIZUMAB
     Dosage: 200 MILLIGRAM,  (EVERY 3 WEEK)
     Route: 065
     Dates: start: 20240426, end: 20240426
  5. KEYTRUDA [Suspect]
     Active Substance: PEMBROLIZUMAB
     Dosage: 200 MILLIGRAM,  (EVERY 3 WEEK)
     Route: 065
     Dates: start: 20240405, end: 20240405
  6. KEYTRUDA [Suspect]
     Active Substance: PEMBROLIZUMAB
     Dosage: 200 MILLIGRAM,  (EVERY 3 WEEK)
     Route: 065
     Dates: start: 20240315, end: 20240315
  7. TAXOL [Suspect]
     Active Substance: PACLITAXEL
     Indication: Triple negative breast cancer
     Dosage: UNK
     Route: 065
     Dates: start: 202406
  8. TAXOL [Suspect]
     Active Substance: PACLITAXEL
     Dosage: UNK
     Route: 065
     Dates: start: 20240315, end: 20240624

REACTIONS (7)
  - Immune-mediated arthritis [Unknown]
  - Polymyalgia rheumatica [Recovering/Resolving]
  - Polyarthritis [Unknown]
  - Discomfort [Unknown]
  - Eating disorder [Unknown]
  - Hypermetabolism [Unknown]
  - Synovial rupture [Unknown]

NARRATIVE: CASE EVENT DATE: 20240426
